FAERS Safety Report 17147964 (Version 1)
Quarter: 2019Q4

REPORT INFORMATION
  Report Type: Report from Study
  Country: AR (occurrence: AR)
  Receive Date: 20191212
  Receipt Date: 20191212
  Transmission Date: 20200122
  Serious: Yes (Other)
  Sender: FDA-Public Use
  Company Number: AR-B.I. PHARMACEUTICALS,INC./RIDGEFIELD-2019-BI-112199

PATIENT
  Age: 60 Year
  Sex: Female
  Weight: 72.1 kg

DRUGS (12)
  1. NINTEDANIB [Suspect]
     Active Substance: NINTEDANIB
     Indication: INTERSTITIAL LUNG DISEASE
     Route: 048
     Dates: start: 20190711, end: 20190923
  2. MEPREDNISONE [Concomitant]
     Active Substance: MEPREDNISONE
     Indication: INTERSTITIAL LUNG DISEASE
     Route: 048
     Dates: start: 201609
  3. VILANTEROL [Concomitant]
     Active Substance: VILANTEROL TRIFENATATE
     Indication: INTERSTITIAL LUNG DISEASE
     Route: 055
     Dates: start: 20171010
  4. CALCIUM CITRATE [Concomitant]
     Active Substance: CALCIUM CITRATE
     Indication: OSTEOPENIA
     Route: 048
     Dates: start: 201606
  5. OMEPRAZOL [OMEPRAZOLE] [Concomitant]
     Active Substance: OMEPRAZOLE
     Indication: PROPHYLAXIS
     Route: 048
     Dates: start: 201706
  6. AMILORIDE [Concomitant]
     Active Substance: AMILORIDE
     Indication: HYPERTENSION
     Route: 048
     Dates: start: 201609
  7. IBANDRONATO DE SODIO [Concomitant]
     Indication: OSTEOPENIA
     Route: 048
     Dates: start: 201706
  8. METFORMIN [Concomitant]
     Active Substance: METFORMIN HYDROCHLORIDE
     Indication: TYPE 2 DIABETES MELLITUS
     Route: 048
     Dates: start: 20190703
  9. GLIMEPIRIDE. [Concomitant]
     Active Substance: GLIMEPIRIDE
     Indication: TYPE 2 DIABETES MELLITUS
     Route: 048
     Dates: start: 20190703
  10. ATORVASTATINE [ATORVASTATIN] [Concomitant]
     Active Substance: ATORVASTATIN
     Indication: DYSLIPIDAEMIA
     Route: 048
     Dates: start: 201707
  11. HIDROCLOROTIAZIDA [Concomitant]
     Active Substance: HYDROCHLOROTHIAZIDE
     Indication: HYPERTENSION
     Route: 048
     Dates: start: 201909
  12. UMECLIDINIUM [Concomitant]
     Active Substance: UMECLIDINIUM BROMIDE
     Indication: INTERSTITIAL LUNG DISEASE
     Route: 055
     Dates: start: 20171010

REACTIONS (1)
  - Liver injury [Recovered/Resolved]

NARRATIVE: CASE EVENT DATE: 20190905
